FAERS Safety Report 7030387-5 (Version None)
Quarter: 2010Q4

REPORT INFORMATION
  Report Type: 
  Country: None (occurrence: None)
  Receive Date: 20101006
  Receipt Date: 20100929
  Transmission Date: 20110411
  Serious: Yes (Death, Hospitalization)
  Sender: FDA-Public Use
  Company Number: DE-ALEXION-A201001229

PATIENT
  Sex: Male

DRUGS (6)
  1. SOLIRIS [Suspect]
     Indication: PAROXYSMAL NOCTURNAL HAEMOGLOBINURIA
     Dosage: 600 MG, UNK
     Route: 042
     Dates: start: 20090806
  2. EXJADE [Concomitant]
     Indication: HAEMOCHROMATOSIS
     Dosage: 2X500 MG
     Route: 048
     Dates: start: 20090601
  3. METOPROLOL TARTRATE [Concomitant]
     Indication: HYPERTENSION
     Dosage: 100 MG, UNK
     Route: 048
  4. DECORTIN [Concomitant]
     Indication: ANAEMIA HAEMOLYTIC AUTOIMMUNE
     Dosage: 20 MG, UNK
     Route: 048
     Dates: start: 20090601
  5. TORASEMID [Concomitant]
     Indication: OEDEMA PERIPHERAL
     Dosage: 2X10MG
     Route: 048
     Dates: start: 20100401
  6. CEFUROXIM                          /00454602/ [Concomitant]
     Indication: EPIDIDYMITIS
     Dosage: 2X500 MG
     Route: 048
     Dates: start: 20100723, end: 20100805

REACTIONS (3)
  - ERYSIPELAS [None]
  - MULTI-ORGAN FAILURE [None]
  - SEPTIC SHOCK [None]
